FAERS Safety Report 10466301 (Version 1)
Quarter: 2014Q3

REPORT INFORMATION
  Report Type: Spontaneous
  Country: US (occurrence: US)
  Receive Date: 20140922
  Receipt Date: 20140922
  Transmission Date: 20150326
  Serious: Yes (Other)
  Sender: FDA-Public Use
  Company Number: US-TEVA-509642USA

PATIENT
  Sex: Female

DRUGS (1)
  1. COPAXONE [Suspect]
     Active Substance: GLATIRAMER ACETATE
     Indication: MULTIPLE SCLEROSIS
     Dosage: DOSE AND FREQUENCY NOT PROVIDED
     Dates: start: 201308

REACTIONS (15)
  - Brain oedema [Unknown]
  - Injection site pruritus [Unknown]
  - Hypoaesthesia [Unknown]
  - Injection site pain [Unknown]
  - Drug effect decreased [Unknown]
  - Depression [Unknown]
  - Sleep disorder [Unknown]
  - Multiple sclerosis [Unknown]
  - Feeling abnormal [Unknown]
  - Stress [Unknown]
  - Fatigue [Unknown]
  - Injection site urticaria [Unknown]
  - Wound [Unknown]
  - Paraesthesia [Unknown]
  - Gait disturbance [Unknown]
